FAERS Safety Report 16264959 (Version 1)
Quarter: 2019Q2

REPORT INFORMATION
  Report Type: Spontaneous
  Country: US (occurrence: US)
  Receive Date: 20190502
  Receipt Date: 20190502
  Transmission Date: 20190711
  Serious: No
  Sender: FDA-Public Use
  Company Number: US-SA-2019SA116609

PATIENT
  Sex: Female

DRUGS (1)
  1. ALLEGRA COOLING RELIEF ANTI-ITCH [Suspect]
     Active Substance: ALLANTOIN\DIPHENHYDRAMINE HYDROCHLORIDE

REACTIONS (1)
  - Drug ineffective [Unknown]
